FAERS Safety Report 22631228 (Version 1)
Quarter: 2023Q2

REPORT INFORMATION
  Report Type: Report from Study
  Country: US (occurrence: US)
  Receive Date: 20230623
  Receipt Date: 20230623
  Transmission Date: 20230722
  Serious: Yes (Other)
  Sender: FDA-Public Use
  Company Number: US-ABBVIE-5294261

PATIENT
  Sex: Female

DRUGS (2)
  1. HUMIRA [Suspect]
     Active Substance: ADALIMUMAB
     Indication: Uveitis
     Dosage: FORM STRENGTH UNITS: 40 MILLIGRAM?START DATE TEXT: JUN OR JUL 2019
     Route: 058
     Dates: start: 201906
  2. METHOTREXATE [Concomitant]
     Active Substance: METHOTREXATE
     Indication: Uveitis

REACTIONS (7)
  - Deafness transitory [Unknown]
  - Uveitis [Unknown]
  - Arthritis [Unknown]
  - Drug ineffective [Unknown]
  - Gout [Unknown]
  - Stress [Unknown]
  - Seasonal allergy [Unknown]

NARRATIVE: CASE EVENT DATE: 20230101
